FAERS Safety Report 7369199-1 (Version None)
Quarter: 2011Q1

REPORT INFORMATION
  Report Type: 
  Country: None (occurrence: None)
  Receive Date: 20110323
  Receipt Date: 20110321
  Transmission Date: 20110831
  Serious: Yes (Hospitalization)
  Sender: FDA-Public Use
  Company Number: AU-ROCHE-764987

PATIENT
  Sex: Male
  Weight: 59.5 kg

DRUGS (12)
  1. BIOMAG [Concomitant]
     Route: 048
     Dates: start: 20101207
  2. VITAMIN D [Concomitant]
     Indication: PROPHYLAXIS
     Route: 048
  3. CLEXANE [Concomitant]
     Indication: ATRIAL FIBRILLATION
     Route: 058
     Dates: start: 20110110
  4. OXALIPLATIN [Suspect]
     Indication: RECTAL CANCER
     Dosage: FREQUENCY: DAY 1 OF 3 WEEK CYCLE. LAST DOSE PRIOR TO SAE 7 DECEMBER 2010.
     Route: 042
     Dates: start: 20100720, end: 20101207
  5. DULOXETINE [Concomitant]
     Indication: DEPRESSION
     Route: 048
  6. FRUSEMIDE [Concomitant]
     Indication: ATRIAL FIBRILLATION
     Route: 048
     Dates: start: 20110221
  7. ASPIRIN [Concomitant]
     Indication: ATRIAL FIBRILLATION
     Route: 048
     Dates: start: 20101207
  8. CAPECITABINE [Suspect]
     Indication: RECTAL CANCER
     Dosage: ADMINISTERED DAY 1 - DAY 15 OF 3 WEEK CYCLE. LAST DOSE PRIOR TO SAE 03 MARCH 2011.
     Route: 048
     Dates: start: 20100720
  9. POTASSIUM CHLORIDE [Concomitant]
     Indication: HYPOKALAEMIA
     Route: 048
     Dates: start: 20101229
  10. PERINDOPRIL [Concomitant]
     Indication: ATRIAL FIBRILLATION
     Route: 048
     Dates: start: 20110221
  11. DIGOXIN [Concomitant]
     Indication: ATRIAL FIBRILLATION
     Route: 048
     Dates: start: 20110215
  12. XALATAN [Concomitant]
     Indication: GLAUCOMA
     Dosage: 1 DROP IN BOTH EYES, SCHEDULE: NOCTE
     Route: 061

REACTIONS (1)
  - SMALL INTESTINAL OBSTRUCTION [None]
